FAERS Safety Report 24243706 (Version 1)
Quarter: 2024Q3

REPORT INFORMATION
  Report Type: Report from Study
  Country: GB (occurrence: US)
  Receive Date: 20240823
  Receipt Date: 20240823
  Transmission Date: 20241016
  Serious: No
  Sender: ALEXION PHARMACEUTICALS
  Company Number: US-AstraZeneca-CH-00676443A

PATIENT
  Age: 82 Year
  Sex: Male

DRUGS (2)
  1. ULTOMIRIS [Suspect]
     Active Substance: RAVULIZUMAB-CWVZ
     Indication: Myasthenia gravis
     Dosage: UNK
     Route: 065
  2. PREDNISONE [Suspect]
     Active Substance: PREDNISONE
     Indication: Product used for unknown indication
     Dosage: UNK
     Route: 065

REACTIONS (8)
  - COVID-19 [Unknown]
  - Muscle disorder [Unknown]
  - Dyspnoea [Unknown]
  - Asthenia [Unknown]
  - Weight increased [Unknown]
  - Peripheral swelling [Unknown]
  - Mobility decreased [Unknown]
  - Pain [Unknown]

NARRATIVE: CASE EVENT DATE: 20240301
